FAERS Safety Report 21661601 (Version 1)
Quarter: 2022Q4

REPORT INFORMATION
  Report Type: Spontaneous
  Country: US (occurrence: US)
  Receive Date: 20221130
  Receipt Date: 20221130
  Transmission Date: 20230113
  Serious: Yes (Other)
  Sender: FDA-Public Use
  Company Number: US-STRIDES ARCOLAB LIMITED-2022SP009558

PATIENT
  Age: 41 Year
  Sex: Female

DRUGS (6)
  1. AMITRIPTYLINE [Suspect]
     Active Substance: AMITRIPTYLINE
     Indication: Nausea
     Dosage: UNK
     Route: 065
  2. AMITRIPTYLINE [Suspect]
     Active Substance: AMITRIPTYLINE
     Indication: Headache
  3. GABAPENTIN [Suspect]
     Active Substance: GABAPENTIN
     Indication: Nausea
     Dosage: UNK
     Route: 065
  4. GABAPENTIN [Suspect]
     Active Substance: GABAPENTIN
     Indication: Headache
  5. MORPHINE [Concomitant]
     Active Substance: MORPHINE
     Indication: Headache
     Dosage: UNK
     Route: 065
  6. MORPHINE [Concomitant]
     Active Substance: MORPHINE
     Indication: Nausea

REACTIONS (2)
  - Therapy partial responder [Unknown]
  - Off label use [Unknown]
